FAERS Safety Report 5309421-6 (Version None)
Quarter: 2007Q2

REPORT INFORMATION
  Report Type: 
  Country: None (occurrence: None)
  Receive Date: 20070425
  Receipt Date: 20070425
  Transmission Date: 20071010
  Serious: Yes (Death)
  Sender: FDA-Public Use
  Company Number: None

PATIENT
  Age: 25 Year
  Sex: Male
  Weight: 90.7194 kg

DRUGS (4)
  1. TRILEPTAL [Suspect]
     Indication: CONVULSION
     Dosage: THERAPEUTIC DOSES
  2. LAMICTAL [Suspect]
     Indication: BIPOLAR DISORDER
  3. FENTANYL [Concomitant]
  4. OXYCODONE HCL [Concomitant]

REACTIONS (1)
  - DRUG INTERACTION [None]
